FAERS Safety Report 9012082 (Version 1)
Quarter: 2013Q1

REPORT INFORMATION
  Report Type: Spontaneous
  Country: IT (occurrence: IT)
  Receive Date: 20130114
  Receipt Date: 20130114
  Transmission Date: 20140127
  Serious: Yes (Hospitalization)
  Sender: FDA-Public Use
  Company Number: IT-ROCHE-1178473

PATIENT
  Age: 52 Year
  Sex: Female

DRUGS (5)
  1. RITUXIMAB [Suspect]
     Indication: GLOMERULONEPHRITIS
     Route: 042
     Dates: start: 20121213
  2. TRIATEC [Concomitant]
     Route: 065
  3. LASIX [Concomitant]
     Route: 065
  4. TENORMIN [Concomitant]
     Route: 065
  5. ZYLORIC [Concomitant]
     Route: 065

REACTIONS (1)
  - Generalised erythema [Recovering/Resolving]
